FAERS Safety Report 9729312 (Version 3)
Quarter: 2014Q1

REPORT INFORMATION
  Report Type: Report from Study
  Country: FR (occurrence: FR)
  Receive Date: 20131204
  Receipt Date: 20140110
  Transmission Date: 20141002
  Serious: Yes (Hospitalization, Other)
  Sender: FDA-Public Use
  Company Number: FR-PFIZER INC-2013336883

PATIENT
  Age: 75 Year
  Sex: Female

DRUGS (7)
  1. SUTENT [Suspect]
     Indication: METASTATIC RENAL CELL CARCINOMA
     Dosage: 50 MG, UNK
     Route: 048
     Dates: start: 20130515, end: 20131015
  2. ALPRAZOLAM [Concomitant]
     Indication: ANXIETY
     Dosage: UNK
     Route: 048
  3. DOLIPRANE [Concomitant]
     Indication: PAIN
     Dosage: UNK
     Route: 048
  4. SECTRAL [Concomitant]
     Indication: HYPERTENSION
     Dosage: 200 MG, DAILY
     Route: 048
  5. INEXIUM /01479302/ [Concomitant]
     Indication: GASTROOESOPHAGEAL REFLUX PROPHYLAXIS
     Dosage: 20 MG, DAILY
     Route: 048
  6. ACETYLSALICYLATE LYSINE [Concomitant]
     Indication: DEEP VEIN THROMBOSIS
     Dosage: 75 MG, DAILY
     Route: 048
  7. LERCANIDIPINE [Concomitant]
     Indication: HYPERTENSION
     Dosage: 10 MG, DAILY
     Route: 048
     Dates: start: 20130814

REACTIONS (2)
  - Hepatocellular injury [Recovered/Resolved]
  - Palmar-plantar erythrodysaesthesia syndrome [Recovered/Resolved]
